FAERS Safety Report 24355145 (Version 7)
Quarter: 2025Q1

REPORT INFORMATION
  Report Type: Report from Study
  Country: US (occurrence: US)
  Receive Date: 20240923
  Receipt Date: 20250106
  Transmission Date: 20250409
  Serious: Yes (Hospitalization)
  Sender: TAKEDA
  Company Number: US-TAKEDA-2024TUS093994

PATIENT
  Age: 74 Year
  Sex: Female

DRUGS (5)
  1. IXAZOMIB [Suspect]
     Active Substance: IXAZOMIB
     Indication: Monoclonal gammopathy
  2. IXAZOMIB [Suspect]
     Active Substance: IXAZOMIB
     Indication: Plasma cell myeloma
  3. IXAZOMIB [Suspect]
     Active Substance: IXAZOMIB
  4. LENALIDOMIDE [Concomitant]
     Active Substance: LENALIDOMIDE
  5. BENADRYL [Concomitant]
     Active Substance: DIPHENHYDRAMINE HYDROCHLORIDE

REACTIONS (10)
  - Chest discomfort [Unknown]
  - Cardiac disorder [Unknown]
  - Paraesthesia [Unknown]
  - Peripheral swelling [Unknown]
  - Pruritus [Not Recovered/Not Resolved]
  - Fatigue [Not Recovered/Not Resolved]
  - Arteriosclerosis [Unknown]
  - Dyspnoea [Unknown]
  - Nausea [Recovered/Resolved]
  - Rash pruritic [Not Recovered/Not Resolved]

NARRATIVE: CASE EVENT DATE: 20240917
